FAERS Safety Report 7646445-8 (Version None)
Quarter: 2011Q3

REPORT INFORMATION
  Report Type: 
  Country: None (occurrence: None)
  Receive Date: 20110801
  Receipt Date: 20110719
  Transmission Date: 20111222
  Serious: Yes (Hospitalization, Other)
  Sender: FDA-Public Use
  Company Number: US-RB-026802-11

PATIENT
  Age: 77 Year
  Sex: Female

DRUGS (4)
  1. MUCINEX [Suspect]
     Indication: PRODUCT USED FOR UNKNOWN INDICATION
     Route: 048
  2. ASPIRIN [Concomitant]
  3. ACTONEL [Concomitant]
  4. DIOVAN [Concomitant]

REACTIONS (6)
  - CONVULSION [None]
  - DIARRHOEA [None]
  - HYPERHIDROSIS [None]
  - ACCIDENTAL OVERDOSE [None]
  - HYPERTENSION [None]
  - VOMITING [None]
